FAERS Safety Report 10235710 (Version 2)
Quarter: 2014Q2

REPORT INFORMATION
  Report Type: Spontaneous
  Country: AT (occurrence: AT)
  Receive Date: 20140613
  Receipt Date: 20140613
  Transmission Date: 20141212
  Serious: No
  Sender: FDA-Public Use
  Company Number: AT-UCBSA-121684

PATIENT
  Age: 17 Year
  Sex: Female

DRUGS (8)
  1. LEVETIRACETAM UCB [Suspect]
     Indication: STATUS EPILEPTICUS
     Dosage: STRENGTH: 2000 MG
     Route: 042
  2. PHENYTOIN [Suspect]
     Indication: STATUS EPILEPTICUS
     Dosage: STRENGTH: 750 MG
  3. CORTISONE [Concomitant]
     Indication: VASCULITIS
     Dosage: UNKNOWN DOSE
  4. CEFTRIAXON [Concomitant]
     Indication: PLEOCYTOSIS
     Dosage: UNKNOWN
  5. CEFTRIAXON [Concomitant]
     Indication: INFECTION
  6. ACICLOVIR [Concomitant]
     Dosage: UNKNOWN DOSE
  7. CLARITHROMYCIN [Concomitant]
     Indication: PLEOCYTOSIS
     Dosage: UNKNOWN DOSE
  8. CLARITHROMYCIN [Concomitant]
     Indication: INFECTION

REACTIONS (3)
  - Thrombocytopenia [Unknown]
  - Anaemia [Unknown]
  - Therapeutic response changed [Unknown]
